FAERS Safety Report 6447603-0 (Version None)
Quarter: 2009Q4

REPORT INFORMATION
  Report Type: 
  Country: None (occurrence: None)
  Receive Date: 20091119
  Receipt Date: 20090729
  Transmission Date: 20100525
  Serious: Yes (Hospitalization)
  Sender: FDA-Public Use
  Company Number: US-AMGEN-KDL331752

PATIENT
  Sex: Female

DRUGS (2)
  1. ENBREL [Suspect]
     Indication: RHEUMATOID ARTHRITIS
     Route: 058
     Dates: start: 20081229
  2. METHOTREXATE [Concomitant]
     Dates: start: 20070101

REACTIONS (4)
  - HEADACHE [None]
  - LUNG NEOPLASM MALIGNANT [None]
  - RESPIRATORY DISORDER [None]
  - RHINORRHOEA [None]
